FAERS Safety Report 9187357 (Version 1)
Quarter: 2012Q4

REPORT INFORMATION
  Report Type: 
  Country: US (occurrence: US)
  Receive Date: 20121114
  Receipt Date: 20121114
  Transmission Date: 20130627
  Serious: Yes (Hospitalization)
  Sender: FDA-Public Use
  Company Number: US-ABBOTT-12P-163-0930254-00

PATIENT
  Sex: Female
  Weight: 93.98 kg

DRUGS (2)
  1. TRICOR TABLETS [Suspect]
     Indication: BLOOD CHOLESTEROL INCREASED
  2. INVAGA [Concomitant]
     Indication: POST-TRAUMATIC STRESS DISORDER

REACTIONS (1)
  - Bile duct stone [Recovered/Resolved]
